FAERS Safety Report 5318695-7 (Version None)
Quarter: 2007Q2

REPORT INFORMATION
  Report Type: 
  Country: None (occurrence: None)
  Receive Date: 20070508
  Receipt Date: 20070503
  Transmission Date: 20071010
  Serious: Yes (Hospitalization)
  Sender: FDA-Public Use
  Company Number: CH-BRISTOL-MYERS SQUIBB COMPANY-13769880

PATIENT
  Age: 76 Year
  Sex: Female

DRUGS (14)
  1. SINEMET CR [Suspect]
     Indication: PARKINSON'S DISEASE
     Route: 048
     Dates: start: 20070309
  2. DAFALGAN TABS 1 GM [Suspect]
     Indication: PAIN
     Route: 048
     Dates: start: 20070306, end: 20070313
  3. CIPROFLOXACIN HYDROCHLORIDE [Suspect]
     Indication: OSTEOMYELITIS
     Route: 048
     Dates: start: 20070312, end: 20070319
  4. AUGMENTIN '125' [Suspect]
     Indication: OSTEOMYELITIS
     Dosage: DOSE: 1G/200MG BID
     Route: 041
     Dates: start: 20070319, end: 20070321
  5. DALACIN [Suspect]
     Indication: OSTEOMYELITIS
     Route: 048
     Dates: start: 20060403, end: 20060101
  6. FRAGMIN [Suspect]
     Route: 058
     Dates: start: 20070301
  7. MOTILIUM [Concomitant]
     Indication: PARKINSON'S DISEASE
     Route: 048
     Dates: start: 20070306
  8. BRUFEN [Concomitant]
     Indication: PAIN
     Route: 048
     Dates: start: 20070313, end: 20070330
  9. PENICILLIN G [Concomitant]
     Indication: OSTEOMYELITIS
     Route: 041
     Dates: start: 20070321, end: 20070402
  10. PANTOZOL [Concomitant]
     Dates: start: 20070324, end: 20070404
  11. TORSEMIDE [Concomitant]
     Route: 048
     Dates: start: 20070402, end: 20070404
  12. EFFORTIL [Concomitant]
     Route: 048
  13. CLOZAPINE [Concomitant]
     Route: 048
  14. EFFEXOR [Concomitant]
     Route: 048

REACTIONS (1)
  - HEPATOCELLULAR DAMAGE [None]
